FAERS Safety Report 24070352 (Version 2)
Quarter: 2024Q3

REPORT INFORMATION
  Report Type: Spontaneous
  Country: IN (occurrence: IN)
  Receive Date: 20240710
  Receipt Date: 20240913
  Transmission Date: 20241017
  Serious: Yes (Hospitalization)
  Sender: ROCHE
  Company Number: IN-ROCHE-3562932

PATIENT
  Age: 69 Year
  Sex: Male

DRUGS (1)
  1. PHESGO [Suspect]
     Active Substance: HYALURONIDASE-ZZXF\PERTUZUMAB\TRASTUZUMAB
     Indication: Malignant sweat gland neoplasm
     Route: 058
     Dates: start: 20240511

REACTIONS (3)
  - Off label use [Unknown]
  - Cardiac dysfunction [Unknown]
  - Dizziness [Unknown]
